FAERS Safety Report 18638000 (Version 1)
Quarter: 2020Q4

REPORT INFORMATION
  Report Type: Spontaneous
  Country: US (occurrence: US)
  Receive Date: 20201218
  Receipt Date: 20201218
  Transmission Date: 20210114
  Serious: Yes (Other)
  Sender: FDA-Public Use
  Company Number: US-REGENERON PHARMACEUTICALS, INC.-2020-18567

PATIENT

DRUGS (2)
  1. EYLEA [Suspect]
     Active Substance: AFLIBERCEPT
     Indication: EYE HAEMORRHAGE
  2. EYLEA [Suspect]
     Active Substance: AFLIBERCEPT
     Indication: CHOROIDAL NEOVASCULARISATION
     Dosage: 2 MG, LEFT EYE, ONLY DOSE
     Dates: start: 20200113, end: 20200113

REACTIONS (20)
  - Aphasia [Recovering/Resolving]
  - Chest pain [Unknown]
  - Lacunar infarction [Unknown]
  - Pain [Unknown]
  - Dyspepsia [Unknown]
  - Off label use [Unknown]
  - Auditory disorder [Unknown]
  - Dysarthria [Recovering/Resolving]
  - Muscle spasms [Not Recovered/Not Resolved]
  - Muscle spasms [Unknown]
  - Pain in extremity [Unknown]
  - Peripheral swelling [Recovering/Resolving]
  - Visual impairment [Recovered/Resolved]
  - Polyuria [Unknown]
  - Eructation [Unknown]
  - Speech disorder [Unknown]
  - Hypoaesthesia [Unknown]
  - Eye pain [Recovered/Resolved]
  - Paraesthesia [Unknown]
  - Visual field defect [Unknown]

NARRATIVE: CASE EVENT DATE: 202001
